FAERS Safety Report 5324792-2 (Version None)
Quarter: 2007Q2

REPORT INFORMATION
  Report Type: 
  Country: None (occurrence: None)
  Receive Date: 20070515
  Receipt Date: 20070504
  Transmission Date: 20071010
  Serious: Yes (Hospitalization)
  Sender: FDA-Public Use
  Company Number: PHHO2007US07785

PATIENT
  Age: 59 Year
  Sex: Female
  Weight: 83.446 kg

DRUGS (2)
  1. MYCOPHENOLIC ACID [Suspect]
     Indication: TRANSPLANT
     Dosage: 720 MG, BID
     Route: 048
  2. NEORAL [Suspect]
     Indication: TRANSPLANT
     Dosage: 125 MG DAILY
     Route: 048

REACTIONS (10)
  - BLOOD CREATININE INCREASED [None]
  - DUODENAL ULCER [None]
  - DUODENITIS [None]
  - GASTRITIS EROSIVE [None]
  - GASTRITIS HAEMORRHAGIC [None]
  - HELICOBACTER GASTRITIS [None]
  - NAUSEA [None]
  - OESOPHAGEAL ULCER [None]
  - REFLUX OESOPHAGITIS [None]
  - VOMITING [None]
